FAERS Safety Report 9462237 (Version 1)
Quarter: 2013Q3

REPORT INFORMATION
  Report Type: Spontaneous
  Country: DE (occurrence: DE)
  Receive Date: 20130816
  Receipt Date: 20130816
  Transmission Date: 20140515
  Serious: Yes (Other)
  Sender: FDA-Public Use
  Company Number: DE-PFIZER INC-2013237760

PATIENT
  Age: 46 Year
  Sex: Female
  Weight: 53 kg

DRUGS (1)
  1. FASTJEKT [Suspect]
     Dosage: UNK
     Dates: start: 20130805

REACTIONS (5)
  - Accidental exposure to product [Recovered/Resolved]
  - Shock [Recovered/Resolved]
  - Expired drug administered [Recovered/Resolved]
  - Injection site coldness [Recovered/Resolved]
  - Injection site pallor [Recovered/Resolved]
